FAERS Safety Report 5043398-6 (Version None)
Quarter: 2006Q3

REPORT INFORMATION
  Report Type: 
  Country: None (occurrence: None)
  Receive Date: 20060705
  Receipt Date: 20060626
  Transmission Date: 20061208
  Serious: Yes (Hospitalization)
  Sender: FDA-Public Use
  Company Number: US-MERCK-0606USA05084

PATIENT

DRUGS (2)
  1. VYTORIN [Suspect]
     Indication: BLOOD CHOLESTEROL INCREASED
     Route: 048
  2. NIACIN [Concomitant]
     Route: 065

REACTIONS (1)
  - INTERNATIONAL NORMALISED RATIO INCREASED [None]
